FAERS Safety Report 18213074 (Version 1)
Quarter: 2020Q3

REPORT INFORMATION
  Report Type: Report from Study
  Country: US (occurrence: US)
  Receive Date: 20200831
  Receipt Date: 20200831
  Transmission Date: 20201103
  Serious: Yes (Other)
  Sender: FDA-Public Use
  Company Number: US-JNJFOC-20200844349

PATIENT
  Age: 29 Year
  Sex: Male

DRUGS (1)
  1. DURAGESIC [Suspect]
     Active Substance: FENTANYL
     Indication: PRODUCT USED FOR UNKNOWN INDICATION
     Route: 065

REACTIONS (6)
  - Road traffic accident [Unknown]
  - Speech disorder [Unknown]
  - Consciousness fluctuating [Unknown]
  - Hyperhidrosis [Unknown]
  - Miosis [Unknown]
  - Incoherent [Unknown]
